FAERS Safety Report 25426758 (Version 4)
Quarter: 2025Q4

REPORT INFORMATION
  Report Type: Report from Study
  Country: US (occurrence: US)
  Receive Date: 20250612
  Receipt Date: 20251219
  Transmission Date: 20260118
  Serious: Yes (Hospitalization, Other)
  Sender: BIOCODEX
  Company Number: US-BIOCODEX2-2025000638

PATIENT
  Age: 2 Year
  Sex: Female
  Weight: 15 kg

DRUGS (18)
  1. DIACOMIT [Suspect]
     Active Substance: STIRIPENTOL
     Indication: Severe myoclonic epilepsy of infancy
     Dosage: TAKE 250 MG VIA G-TUBE TWICE DAILY
     Dates: start: 20240820
  2. DIACOMIT [Suspect]
     Active Substance: STIRIPENTOL
  3. DIACOMIT [Suspect]
     Active Substance: STIRIPENTOL
     Indication: Severe myoclonic epilepsy of infancy
     Dosage: 250 MG VIA G-TUBE THREE TIMES DAILY
     Dates: start: 20240820
  4. DIACOMIT [Suspect]
     Active Substance: STIRIPENTOL
     Dosage: 250MG VIA G-TUBE THREE TIMES DAILY
     Dates: start: 20250624
  5. DIACOMIT [Suspect]
     Active Substance: STIRIPENTOL
     Dosage: TAKE 500 MG (TWO OF THE 250MG CAPSULES DISSOLVED IN 10 ML OF WATER) VIA G-TUBE TWICE DAILY
     Dates: start: 20240820
  6. DIACOMIT [Suspect]
     Active Substance: STIRIPENTOL
  7. DIACOMIT [Suspect]
     Active Substance: STIRIPENTOL
  8. DIACOMIT [Suspect]
     Active Substance: STIRIPENTOL
  9. CLOBAZAM [Concomitant]
     Active Substance: CLOBAZAM
     Indication: Severe myoclonic epilepsy of infancy
  10. CLOBAZAM [Concomitant]
     Active Substance: CLOBAZAM
  11. KEPPRA [Concomitant]
     Active Substance: LEVETIRACETAM
     Indication: Product used for unknown indication
  12. KEPPRA [Concomitant]
     Active Substance: LEVETIRACETAM
  13. PHENOBARBITAL [Concomitant]
     Active Substance: PHENOBARBITAL
     Indication: Product used for unknown indication
  14. PHENOBARBITAL [Concomitant]
     Active Substance: PHENOBARBITAL
  15. GLYCOPYRROLATE [Concomitant]
     Active Substance: GLYCOPYRROLATE
     Indication: Product used for unknown indication
  16. GLYCOPYRROLATE [Concomitant]
     Active Substance: GLYCOPYRROLATE
  17. NYSTATIN [Concomitant]
     Active Substance: NYSTATIN
     Indication: Product used for unknown indication
  18. NYSTATIN [Concomitant]
     Active Substance: NYSTATIN

REACTIONS (6)
  - Seizure [Not Recovered/Not Resolved]
  - Vomiting [Recovered/Resolved]
  - Off label use [Unknown]
  - Wrong technique in product usage process [Unknown]
  - Product preparation issue [Unknown]
  - Hospitalisation [Unknown]

NARRATIVE: CASE EVENT DATE: 20240820
